FAERS Safety Report 10113150 (Version 2)
Quarter: 2015Q1

REPORT INFORMATION
  Report Type: Other
  Country: US (occurrence: US)
  Receive Date: 20140425
  Receipt Date: 20150210
  Transmission Date: 20150720
  Serious: Yes (Hospitalization, Other)
  Sender: FDA-Public Use
  Company Number: US-GSKPPD-2014GSK013738

PATIENT
  Age: 81 Year
  Sex: Female

DRUGS (3)
  1. AVANDIA [Suspect]
     Active Substance: ROSIGLITAZONE MALEATE
     Indication: DIABETES MELLITUS
     Dosage: DATES OF AVANDIA USE COULD NOT BE CONFIRMED IN RECORDS REVIEWED.
     Route: 048
  2. CORGARD [Concomitant]
     Active Substance: NADOLOL
  3. DIOVAN [Concomitant]
     Active Substance: VALSARTAN

REACTIONS (3)
  - Coronary arterial stent insertion [Unknown]
  - Coronary artery disease [Recovered/Resolved]
  - Supraventricular tachycardia [Recovered/Resolved]

NARRATIVE: CASE EVENT DATE: 20091117
